FAERS Safety Report 16770220 (Version 1)
Quarter: 2019Q3

REPORT INFORMATION
  Report Type: Spontaneous
  Country: US (occurrence: US)
  Receive Date: 20190904
  Receipt Date: 20190904
  Transmission Date: 20191005
  Serious: Yes (Hospitalization)
  Sender: FDA-Public Use
  Company Number: US-JNJFOC-20190831401

PATIENT
  Age: 58 Year
  Sex: Male
  Weight: 105.78 kg

DRUGS (1)
  1. LISTERINE ULTRACLEAN ARCTIC MINT [Suspect]
     Active Substance: EUCALYPTOL\MENTHOL\METHYL SALICYLATE\THYMOL
     Indication: DENTAL DISORDER PROPHYLAXIS
     Dosage: CAP AND A HALF/TWICE
     Route: 048

REACTIONS (2)
  - Vomiting [Recovered/Resolved]
  - Expired product administered [Unknown]
